FAERS Safety Report 4506787-1 (Version None)
Quarter: 2004Q4

REPORT INFORMATION
  Report Type: 
  Country: None (occurrence: None)
  Receive Date: 20041122
  Receipt Date: 20040902
  Transmission Date: 20050328
  Serious: Yes (Other)
  Sender: FDA-Public Use
  Company Number: PHNU2004DE03116

PATIENT
  Sex: Female

DRUGS (1)
  1. PRAVIDEL [Suspect]
     Indication: PROLACTINOMA
     Dosage: 3.75 MG/D
     Route: 048
     Dates: start: 19991025

REACTIONS (1)
  - OTOSCLEROSIS [None]
